FAERS Safety Report 9913938 (Version 1)
Quarter: 2014Q1

REPORT INFORMATION
  Report Type: Spontaneous
  Country: US (occurrence: None)
  Receive Date: 20140219
  Receipt Date: 20140219
  Transmission Date: 20141002
  Serious: Yes (Other)
  Sender: FDA-Public Use
  Company Number: None

PATIENT
  Age: 80 Year
  Sex: Female

DRUGS (1)
  1. TRAMADOL [Suspect]
     Indication: PROCEDURAL PAIN
     Dosage: 1AS NEEDED
     Route: 048
     Dates: start: 20140129, end: 20140131

REACTIONS (2)
  - Hallucination, auditory [None]
  - Abnormal sleep-related event [None]
